FAERS Safety Report 4571419-3 (Version None)
Quarter: 2005Q1

REPORT INFORMATION
  Report Type: 
  Country: None (occurrence: None)
  Receive Date: 20050207
  Receipt Date: 20050127
  Transmission Date: 20050727
  Serious: Yes (Death)
  Sender: FDA-Public Use
  Company Number: 200510354JP

PATIENT
  Age: 74 Year
  Sex: Male

DRUGS (4)
  1. TAXOTERE [Suspect]
     Indication: NEOPLASM MALIGNANT
  2. CISPLATIN [Concomitant]
  3. FLUOROURACIL [Concomitant]
  4. RADIOTHERAPY [Concomitant]

REACTIONS (2)
  - DISSEMINATED INTRAVASCULAR COAGULATION [None]
  - RESPIRATORY FAILURE [None]
